FAERS Safety Report 13733508 (Version 1)
Quarter: 2017Q3

REPORT INFORMATION
  Report Type: Spontaneous
  Country: US (occurrence: US)
  Receive Date: 20170707
  Receipt Date: 20170707
  Transmission Date: 20171127
  Serious: No
  Sender: FDA-Public Use
  Company Number: US-ROCHE-1560083

PATIENT
  Sex: Male

DRUGS (13)
  1. FISH OIL [Concomitant]
     Active Substance: FISH OIL
  2. CHLORAMBUCIL [Concomitant]
     Active Substance: CHLORAMBUCIL
  3. TOPROL XL [Concomitant]
     Active Substance: METOPROLOL SUCCINATE
  4. BABY ASPIRIN [Concomitant]
     Active Substance: ASPIRIN
  5. BENADRYL [Concomitant]
     Active Substance: DIPHENHYDRAMINE HYDROCHLORIDE
  6. ZOFRAN [Concomitant]
     Active Substance: ONDANSETRON HYDROCHLORIDE
     Dosage: AS NEEDED
     Route: 065
  7. PROTONIX [Concomitant]
     Active Substance: PANTOPRAZOLE SODIUM
  8. LASIX [Concomitant]
     Active Substance: FUROSEMIDE
     Dosage: DAILY
     Route: 065
  9. LOVASTATIN. [Concomitant]
     Active Substance: LOVASTATIN
  10. WARFARIN [Concomitant]
     Active Substance: WARFARIN
  11. NORCO [Concomitant]
     Active Substance: ACETAMINOPHEN\HYDROCODONE BITARTRATE
  12. GAZYVA [Suspect]
     Active Substance: OBINUTUZUMAB
     Indication: CHRONIC LYMPHOCYTIC LEUKAEMIA
     Route: 042
     Dates: start: 20150401
  13. FLOMAX [Concomitant]
     Active Substance: TAMSULOSIN HYDROCHLORIDE

REACTIONS (7)
  - Liver function test increased [Unknown]
  - Nausea [Recovered/Resolved]
  - Blood pressure increased [Recovered/Resolved]
  - Dyspnoea [Recovered/Resolved]
  - Chills [Recovered/Resolved]
  - Blood bilirubin increased [Unknown]
  - Vomiting [Recovered/Resolved]
